FAERS Safety Report 23433098 (Version 5)
Quarter: 2025Q1

REPORT INFORMATION
  Report Type: Spontaneous
  Country: AU (occurrence: AU)
  Receive Date: 20240123
  Receipt Date: 20250307
  Transmission Date: 20250409
  Serious: Yes (Life-Threatening, Other)
  Sender: GALPHARM INTERNATIONAL
  Company Number: None

PATIENT
  Sex: Male

DRUGS (17)
  1. ACETAMINOPHEN [Interacting]
     Active Substance: ACETAMINOPHEN
     Indication: Suicide attempt
     Route: 065
  2. ACETAMINOPHEN [Interacting]
     Active Substance: ACETAMINOPHEN
     Indication: Intentional overdose
     Route: 065
  3. AMLODIPINE BESYLATE\VALSARTAN [Interacting]
     Active Substance: AMLODIPINE BESYLATE\VALSARTAN
     Indication: Intentional overdose
     Route: 065
  4. AMLODIPINE [Interacting]
     Active Substance: AMLODIPINE BESYLATE
     Indication: Suicide attempt
     Route: 065
  5. ESCITALOPRAM OXALATE [Interacting]
     Active Substance: ESCITALOPRAM OXALATE
     Indication: Intentional overdose
     Route: 065
  6. ESCITALOPRAM OXALATE [Interacting]
     Active Substance: ESCITALOPRAM OXALATE
     Indication: Suicide attempt
     Route: 065
  7. ESOMEPRAZOLE MAGNESIUM [Interacting]
     Active Substance: ESOMEPRAZOLE MAGNESIUM
     Indication: Suicide attempt
     Route: 048
  8. ESOMEPRAZOLE [Interacting]
     Active Substance: ESOMEPRAZOLE
     Indication: Intentional overdose
     Route: 065
  9. VALSARTAN [Interacting]
     Active Substance: VALSARTAN
     Indication: Suicide attempt
     Route: 065
  10. VALSARTAN [Interacting]
     Active Substance: VALSARTAN
     Indication: Intentional overdose
  11. MOCLOBEMIDE [Interacting]
     Active Substance: MOCLOBEMIDE
     Indication: Intentional overdose
     Route: 065
  12. FLUOXETINE HYDROCHLORIDE [Interacting]
     Active Substance: FLUOXETINE HYDROCHLORIDE
     Indication: Intentional overdose
     Route: 065
  13. FLUOXETINE HYDROCHLORIDE [Interacting]
     Active Substance: FLUOXETINE HYDROCHLORIDE
     Indication: Suicide attempt
     Route: 065
  14. VENLAFAXINE HYDROCHLORIDE [Interacting]
     Active Substance: VENLAFAXINE HYDROCHLORIDE
     Indication: Intentional overdose
     Route: 065
  15. TRAMADOL HYDROCHLORIDE [Interacting]
     Active Substance: TRAMADOL HYDROCHLORIDE
     Indication: Suicide attempt
     Route: 065
  16. XELJANZ [Interacting]
     Active Substance: TOFACITINIB CITRATE
     Indication: Suicide attempt
     Route: 048
  17. XELJANZ [Interacting]
     Active Substance: TOFACITINIB CITRATE
     Indication: Intentional overdose

REACTIONS (6)
  - Acute kidney injury [Unknown]
  - Major depression [Unknown]
  - Serotonin syndrome [Unknown]
  - Suicide attempt [Unknown]
  - Metabolic acidosis [Unknown]
  - Physical deconditioning [Unknown]
